FAERS Safety Report 6120594-8 (Version None)
Quarter: 2009Q1

REPORT INFORMATION
  Report Type: 
  Country: None (occurrence: None)
  Receive Date: 20090312
  Receipt Date: 20090312
  Transmission Date: 20090719
  Serious: Yes (Other)
  Sender: FDA-Public Use
  Company Number: None

PATIENT
  Age: 61 Year
  Sex: Male

DRUGS (3)
  1. METFORMIN HCL [Suspect]
     Indication: DIABETES MELLITUS
     Dosage: ONE TABLET BY MOUTH TWICE A DAY
     Route: 048
     Dates: start: 19970101
  2. BYETTA [Concomitant]
  3. AMARYL [Concomitant]

REACTIONS (2)
  - BLOOD GLUCOSE INCREASED [None]
  - PRODUCT QUALITY ISSUE [None]
